FAERS Safety Report 4726201-0 (Version None)
Quarter: 2005Q3

REPORT INFORMATION
  Report Type: 
  Country: None (occurrence: None)
  Receive Date: 20050727
  Receipt Date: 20050307
  Transmission Date: 20060218
  Serious: Yes (Hospitalization, Other)
  Sender: FDA-Public Use
  Company Number: FR-BRISTOL-MYERS SQUIBB COMPANY-12891883

PATIENT
  Age: 56 Year
  Sex: Female
  Weight: 73 kg

DRUGS (6)
  1. COUMADIN [Suspect]
     Dosage: 4 MG 29 - 30-DEC2004; 6 MG 31-DEC-2004 - 02-JAN-2005; 7 MG 03-JAN-2005 TO 04-JAN-2005
     Route: 048
     Dates: start: 20041229, end: 20050104
  2. LOVENOX [Suspect]
     Route: 058
     Dates: start: 20041228, end: 20050104
  3. PROZAC [Suspect]
     Dates: end: 20050110
  4. OMEPRAZOLE [Concomitant]
  5. ALDACTONE [Concomitant]
  6. SECTRAL [Concomitant]

REACTIONS (8)
  - BLOOD PRESSURE DECREASED [None]
  - DEEP VEIN THROMBOSIS [None]
  - HAEMATOMA [None]
  - INFECTION [None]
  - INTERNATIONAL NORMALISED RATIO DECREASED [None]
  - OVERDOSE [None]
  - PULMONARY EMBOLISM [None]
  - SUICIDE ATTEMPT [None]
